FAERS Safety Report 5503771-6 (Version None)
Quarter: 2007Q4

REPORT INFORMATION
  Report Type: 
  Country: None (occurrence: None)
  Receive Date: 20071101
  Receipt Date: 20071023
  Transmission Date: 20080405
  Serious: Yes (Other)
  Sender: FDA-Public Use
  Company Number: US-BRISTOL-MYERS SQUIBB COMPANY-13955042

PATIENT
  Sex: Male
  Weight: 116 kg

DRUGS (1)
  1. ENTECAVIR [Suspect]
     Indication: HEPATITIS B VIRUS
     Dates: start: 20060628, end: 20070727

REACTIONS (2)
  - BLOOD HIV RNA DECREASED [None]
  - DRUG RESISTANCE [None]
